FAERS Safety Report 9292533 (Version 1)
Quarter: 2013Q2

REPORT INFORMATION
  Report Type: Spontaneous
  Country: IT (occurrence: None)
  Receive Date: 20130513
  Receipt Date: 20130513
  Transmission Date: 20140414
  Serious: Yes (Hospitalization)
  Sender: FDA-Public Use
  Company Number: 2013AP004914

PATIENT
  Age: 15 Year
  Sex: Male

DRUGS (6)
  1. RAMIPRIL [Suspect]
     Indication: DRUG ABUSE
     Route: 048
  2. ZITROMAX [Suspect]
     Indication: DRUG ABUSE
     Route: 048
     Dates: start: 20130218, end: 20130218
  3. PURSENNID [Suspect]
     Indication: DRUG ABUSE
     Route: 048
     Dates: start: 20130218, end: 20130219
  4. PARACETAMOL (PARACETAMOL) [Suspect]
     Indication: DRUG ABUSE
     Route: 048
     Dates: start: 20130218, end: 20130218
  5. ALMOTRIPTAN [Suspect]
     Indication: DRUG ABUSE
     Route: 048
     Dates: start: 20130218, end: 20130218
  6. LEVOCETIRIZINE DIHYDROCHLORIDE [Suspect]
     Indication: DRUG ABUSE
     Route: 048
     Dates: start: 20130218, end: 20130218

REACTIONS (5)
  - Confusional state [None]
  - Somnolence [None]
  - Drug abuse [None]
  - Off label use [None]
  - Overdose [None]
